FAERS Safety Report 12802763 (Version 1)
Quarter: 2016Q4

REPORT INFORMATION
  Report Type: Spontaneous
  Country: US (occurrence: US)
  Receive Date: 20161003
  Receipt Date: 20161003
  Transmission Date: 20170207
  Serious: No
  Sender: FDA-Public Use
  Company Number: US-GLAXOSMITHKLINE-US2016141629

PATIENT
  Age: 86 Year
  Sex: Female

DRUGS (8)
  1. LOSARTAN. [Concomitant]
     Active Substance: LOSARTAN
  2. WARFARIN [Concomitant]
     Active Substance: WARFARIN
  3. DILTIAZEM. [Concomitant]
     Active Substance: DILTIAZEM
  4. LORAZEPAM. [Concomitant]
     Active Substance: LORAZEPAM
  5. SIMVASTATIN. [Concomitant]
     Active Substance: SIMVASTATIN
  6. LEVOTHYROXINE. [Concomitant]
     Active Substance: LEVOTHYROXINE
  7. VENTOLIN HFA [Suspect]
     Active Substance: ALBUTEROL SULFATE
     Indication: COUGH
     Dosage: 1 PUFF(S), QD
     Route: 055
     Dates: start: 20160925
  8. PREDNISONE. [Concomitant]
     Active Substance: PREDNISONE

REACTIONS (3)
  - Rhinorrhoea [Unknown]
  - Productive cough [Unknown]
  - Underdose [Unknown]

NARRATIVE: CASE EVENT DATE: 20160925
